FAERS Safety Report 16514486 (Version 1)
Quarter: 2019Q3

REPORT INFORMATION
  Report Type: Other
  Country: IT (occurrence: IT)
  Receive Date: 20190702
  Receipt Date: 20190702
  Transmission Date: 20191004
  Serious: Yes (Hospitalization, Other)
  Sender: FDA-Public Use
  Company Number: IT-APOTEX-2019AP017578

PATIENT
  Age: 53 Year
  Sex: Male

DRUGS (4)
  1. DIAZEPAM. [Suspect]
     Active Substance: DIAZEPAM
     Indication: DRUG ABUSE
     Dosage: 200 MG, UNK, IN TOTAL
     Route: 048
     Dates: start: 20190403, end: 20190403
  2. VENLAFAXINE [Suspect]
     Active Substance: VENLAFAXINE HYDROCHLORIDE
     Indication: DRUG ABUSE
     Dosage: 937.5 MG, UNK, IN TOTAL
     Route: 048
     Dates: start: 20190403, end: 20190403
  3. LEVOPRAID                          /00314301/ [Suspect]
     Active Substance: SULPIRIDE
     Indication: DRUG ABUSE
     Dosage: 25 MG, UNK, IN TOTAL (STRENGTH: 25 MG/ML)
     Route: 048
     Dates: start: 20190403, end: 20190403
  4. OLANZAPINE. [Suspect]
     Active Substance: OLANZAPINE
     Indication: DRUG ABUSE
     Dosage: 17.5 MG, UNK, IN TOTAL
     Route: 048
     Dates: start: 20190403, end: 20190403

REACTIONS (2)
  - Sedation [Recovering/Resolving]
  - Drug abuse [Recovering/Resolving]

NARRATIVE: CASE EVENT DATE: 20190403
